FAERS Safety Report 14939435 (Version 1)
Quarter: 2018Q2

REPORT INFORMATION
  Report Type: Spontaneous
  Country: US (occurrence: US)
  Receive Date: 20180507
  Receipt Date: 20180507
  Transmission Date: 20180711
  Serious: Yes (Other)
  Sender: FDA-Public Use
  Company Number: None

PATIENT
  Age: 64 Year
  Sex: Male
  Weight: 92.25 kg

DRUGS (2)
  1. TUMERIC [Concomitant]
     Active Substance: HERBALS\TURMERIC
  2. GRALISE [Suspect]
     Active Substance: GABAPENTIN
     Indication: NEURALGIA
     Dosage: ?          QUANTITY:1 CAPSULE(S);?
     Route: 048

REACTIONS (3)
  - Vision blurred [None]
  - Weight increased [None]
  - Myopia [None]

NARRATIVE: CASE EVENT DATE: 20180502
